FAERS Safety Report 10204624 (Version 2)
Quarter: 2014Q2

REPORT INFORMATION
  Report Type: Spontaneous
  Country: US (occurrence: US)
  Receive Date: 20140529
  Receipt Date: 20140630
  Transmission Date: 20141212
  Serious: No
  Sender: FDA-Public Use
  Company Number: US-B.I. PHARMACEUTICALS,INC./RIDGEFIELD-2014-BI-22201BP

PATIENT
  Age: 26 Year
  Sex: Male
  Weight: 100 kg

DRUGS (8)
  1. COMBIVENT [Suspect]
     Indication: CHRONIC OBSTRUCTIVE PULMONARY DISEASE
     Dosage: DOSE PER APPLICATION: 20 MCG / 100 MCG;
     Route: 055
     Dates: start: 201301
  2. DUONEB [Concomitant]
     Indication: CHRONIC OBSTRUCTIVE PULMONARY DISEASE
     Dosage: DOSE PER APPLICATION: 0.5MG/3MG; DAILY DOSE: 1MG/6MG
     Route: 055
  3. LISINOPRIL [Concomitant]
     Indication: HYPERTENSION
     Dosage: 5 MG
     Route: 048
  4. INVEGA [Concomitant]
     Indication: SCHIZOAFFECTIVE DISORDER
     Dosage: 3 MG
     Route: 048
  5. TRILEPTAL [Concomitant]
     Indication: SCHIZOAFFECTIVE DISORDER
     Dosage: 600 MG
     Route: 048
  6. XANAX [Concomitant]
     Indication: ANXIETY
     Dosage: 2 MG
     Route: 048
  7. RANITIDINE [Concomitant]
     Indication: GASTROOESOPHAGEAL REFLUX DISEASE
     Dosage: 300 MG
     Route: 048
  8. COMPAZINE [Concomitant]
     Indication: NAUSEA
     Route: 048

REACTIONS (2)
  - Dyspnoea [Not Recovered/Not Resolved]
  - Product quality issue [Unknown]
